FAERS Safety Report 14586273 (Version 1)
Quarter: 2018Q1

REPORT INFORMATION
  Report Type: Spontaneous
  Country: DE (occurrence: BR)
  Receive Date: 20180301
  Receipt Date: 20180301
  Transmission Date: 20180509
  Serious: Yes (Other)
  Sender: FDA-Public Use
  Company Number: BR-TORRENT-00004297

PATIENT
  Age: 44 Year
  Sex: Female
  Weight: 76 kg

DRUGS (2)
  1. AZUKON MR [Suspect]
     Active Substance: GLICLAZIDE
     Indication: HYPERGLYCAEMIA
     Dosage: ONE TABLET IN THE MORNING IN FASTING
     Route: 048
     Dates: start: 201401
  2. LOSARTAN POTASSIUM. [Suspect]
     Active Substance: LOSARTAN POTASSIUM
     Indication: HYPERTENSION
     Dosage: ONE TABLET DAILY
     Dates: start: 2009

REACTIONS (2)
  - Hypothyroidism [Not Recovered/Not Resolved]
  - Hyperglycaemia [Not Recovered/Not Resolved]

NARRATIVE: CASE EVENT DATE: 201401
